FAERS Safety Report 8604456-X (Version None)
Quarter: 2012Q3

REPORT INFORMATION
  Report Type: 
  Country: None (occurrence: None)
  Receive Date: 20120820
  Receipt Date: 20120809
  Transmission Date: 20120928
  Serious: Yes (Other)
  Sender: FDA-Public Use
  Company Number: US-JNJFOC-20091008244

PATIENT
  Sex: Female
  Weight: 66.23 kg

DRUGS (18)
  1. FENTANYL-100 [Suspect]
     Indication: FIBROMYALGIA
     Dosage: 75+75
     Route: 062
     Dates: start: 20060101, end: 20060101
  2. DURAGESIC-100 [Suspect]
     Indication: FIBROMYALGIA
     Dosage: RANK 2 AND 3 DRUG WAS GIVEN IN COMBINATION BUT RANK 3 DRUG WAS CONTINUE
     Route: 062
     Dates: start: 20060101
  3. DURAGESIC-100 [Suspect]
     Dosage: 100+50
     Route: 062
     Dates: start: 20090101
  4. SERTRALINE HYDROCHLORIDE [Concomitant]
  5. DURAGESIC-100 [Suspect]
     Indication: BREAKTHROUGH PAIN
     Dosage: 100+50
     Route: 062
     Dates: start: 20090101
  6. DURAGESIC-100 [Suspect]
     Dosage: 100+50
     Route: 062
     Dates: start: 20090101
  7. DURAGESIC-100 [Suspect]
     Dosage: 100+50
     Route: 062
     Dates: start: 19990101, end: 20060101
  8. DURAGESIC-100 [Suspect]
     Dosage: 100+50
     Route: 062
     Dates: start: 20090101
  9. SERTRALINE HYDROCHLORIDE [Concomitant]
  10. DURAGESIC-100 [Suspect]
     Dosage: 100+50
     Route: 062
     Dates: start: 20090101
  11. DURAGESIC-100 [Suspect]
     Dosage: 100+50
     Route: 062
     Dates: start: 20090101
  12. DURAGESIC-100 [Suspect]
     Dosage: 100+50
     Route: 062
     Dates: start: 20090101
  13. FLUVOXAMINE MALEATE [Concomitant]
  14. DURAGESIC-100 [Suspect]
     Dosage: RANK 2 AND 3 DRUG WAS GIVEN IN COMBINATION BUT RANK 3 DRUG WAS CONTINUE
     Route: 062
     Dates: start: 20060101, end: 20091001
  15. DURAGESIC-100 [Suspect]
     Dosage: 100+50
     Route: 062
     Dates: start: 20090101
  16. AN UNKNOWN MEDICATION [Suspect]
     Indication: PAIN
     Route: 008
  17. PROVIGIL [Concomitant]
  18. DURAGESIC-100 [Suspect]
     Route: 062

REACTIONS (20)
  - BLOOD MAGNESIUM DECREASED [None]
  - BLOOD IRON DECREASED [None]
  - OEDEMA PERIPHERAL [None]
  - HYPOTHYROIDISM [None]
  - DEPRESSION [None]
  - WRONG TECHNIQUE IN DRUG USAGE PROCESS [None]
  - GASTRIC DISORDER [None]
  - LIVER DISORDER [None]
  - THYROID DISORDER [None]
  - PAIN [None]
  - BLOOD CHOLESTEROL INCREASED [None]
  - VEIN DISORDER [None]
  - ADVERSE EVENT [None]
  - OSTEOPOROSIS [None]
  - VITAMIN D DEFICIENCY [None]
  - SOMNOLENCE [None]
  - DRUG INEFFECTIVE [None]
  - PRODUCT QUALITY ISSUE [None]
  - HEPATIC CIRRHOSIS [None]
  - ABDOMINAL DISCOMFORT [None]
